FAERS Safety Report 8004860-7 (Version None)
Quarter: 2011Q4

REPORT INFORMATION
  Report Type: 
  Country: None (occurrence: None)
  Receive Date: 20111223
  Receipt Date: 20111216
  Transmission Date: 20120403
  Serious: Yes (Hospitalization)
  Sender: FDA-Public Use
  Company Number: BE-B.I. PHARMACEUTICALS,INC./RIDGEFIELD-2011-BL-00100BL

PATIENT
  Sex: Male
  Weight: 84 kg

DRUGS (2)
  1. PRAMIPEXOLE DIHYDROCHLORIDE [Suspect]
     Indication: PARKINSON'S DISEASE
     Dosage: 2.1 MG
     Route: 048
  2. PROLOPA [Suspect]
     Indication: PARKINSON'S DISEASE
     Dosage: 4.2 G
     Route: 048

REACTIONS (3)
  - POTENTIATING DRUG INTERACTION [None]
  - RESPIRATORY DYSKINESIA [None]
  - OXYGEN SATURATION DECREASED [None]
